FAERS Safety Report 4356593-6 (Version None)
Quarter: 2004Q2

REPORT INFORMATION
  Report Type: 
  Country: None (occurrence: None)
  Receive Date: 20040510
  Receipt Date: 20040510
  Transmission Date: 20050107
  Serious: Yes (Life-Threatening, Hospitalization, Disabling)
  Sender: FDA-Public Use
  Company Number: None

PATIENT
  Sex: Female
  Weight: 68 kg

DRUGS (3)
  1. XYLOCAINE [Suspect]
     Indication: BACK PAIN
     Dosage: 4 ML ST EPIDURAL
     Route: 008
     Dates: start: 20040218, end: 20040218
  2. DEPO-MEDROL [Suspect]
     Dosage: 4 ML ST EPIDURAL
     Route: 008
     Dates: start: 20040218, end: 20040218
  3. HIDROCORTISONE [Concomitant]

REACTIONS (7)
  - GAIT DISTURBANCE [None]
  - MIGRAINE [None]
  - MOVEMENT DISORDER [None]
  - PARAPLEGIA [None]
  - SENSORY DISTURBANCE [None]
  - SENSORY LOSS [None]
  - VERTIGO [None]
